FAERS Safety Report 8104598-1 (Version None)
Quarter: 2012Q1

REPORT INFORMATION
  Report Type: 
  Country: None (occurrence: None)
  Receive Date: 20120201
  Receipt Date: 20120117
  Transmission Date: 20120608
  Serious: Yes (Other)
  Sender: FDA-Public Use
  Company Number: PL-WATSON-2012-01430

PATIENT
  Age: 21 Year
  Sex: Male

DRUGS (1)
  1. KETOPROFEN [Suspect]
     Indication: ARTHRALGIA
     Dosage: UNK
     Route: 061

REACTIONS (2)
  - DISEASE RECURRENCE [None]
  - PHOTOSENSITIVITY REACTION [None]
